FAERS Safety Report 18311384 (Version 1)
Quarter: 2020Q3

REPORT INFORMATION
  Report Type: Spontaneous
  Country: US (occurrence: US)
  Receive Date: 20200924
  Receipt Date: 20200924
  Transmission Date: 20201103
  Serious: No
  Sender: FDA-Public Use
  Company Number: None

PATIENT
  Age: 47 Year
  Sex: Female
  Weight: 81 kg

DRUGS (6)
  1. ATIVAN [Concomitant]
     Active Substance: LORAZEPAM
     Dates: start: 20200701
  2. DEPAKENE [Concomitant]
     Active Substance: VALPROIC ACID
     Dates: start: 20200811
  3. VALIUM [Concomitant]
     Active Substance: DIAZEPAM
     Dates: start: 20200911
  4. CAPLYTA [Suspect]
     Active Substance: LUMATEPERONE
     Indication: SCHIZOAFFECTIVE DISORDER
     Route: 048
     Dates: start: 20200906, end: 20200922
  5. COGENTIN [Concomitant]
     Active Substance: BENZTROPINE MESYLATE
     Dates: start: 20200805
  6. TRILAFON [Concomitant]
     Active Substance: PERPHENAZINE
     Dates: start: 20200902

REACTIONS (2)
  - Vaginal haemorrhage [None]
  - Hypotension [None]

NARRATIVE: CASE EVENT DATE: 20200923
